FAERS Safety Report 4860434-8 (Version None)
Quarter: 2005Q4

REPORT INFORMATION
  Report Type: 
  Country: None (occurrence: None)
  Receive Date: 20051215
  Receipt Date: 20051203
  Transmission Date: 20060501
  Serious: Yes (Other)
  Sender: FDA-Public Use
  Company Number: 2005164680

PATIENT
  Age: 50 Year
  Sex: Female
  Weight: 86.1834 kg

DRUGS (11)
  1. FRAGMIN [Suspect]
     Indication: CEREBROVASCULAR ACCIDENT
     Dosage: 10000 I.U. (10000 I.U., 1 IN 1 D)
     Dates: start: 20040501
  2. FRAGMIN [Suspect]
     Indication: LYME DISEASE
     Dosage: 10000 I.U. (10000 I.U., 1 IN 1 D)
     Dates: start: 20040501
  3. ATENOLOL [Concomitant]
  4. ZITHROMAX [Concomitant]
  5. PROTONIX [Concomitant]
  6. SYNTHROID [Concomitant]
  7. TROSPIUM CHLORIDE (TROSPIUM CHLORIDE) [Concomitant]
  8. MONTELUKAST (MONTELUKAST) [Concomitant]
  9. ADVAIR DISKUS 100/50 [Concomitant]
  10. INTAL [Concomitant]
  11. COMBIVENT [Concomitant]

REACTIONS (7)
  - BLADDER DISORDER [None]
  - DIABETES MELLITUS [None]
  - INJECTION SITE PAIN [None]
  - PHARMACEUTICAL PRODUCT COMPLAINT [None]
  - THYROID NEOPLASM [None]
  - THYROIDITIS [None]
  - TRANSIENT ISCHAEMIC ATTACK [None]
